FAERS Safety Report 10046185 (Version 1)
Quarter: 2014Q1

REPORT INFORMATION
  Report Type: Spontaneous
  Country: US (occurrence: US)
  Receive Date: 20140331
  Receipt Date: 20140331
  Transmission Date: 20141002
  Serious: No
  Sender: FDA-Public Use
  Company Number: US-BIOGENIDEC-2014BI029480

PATIENT
  Sex: Female

DRUGS (8)
  1. TYSABRI [Suspect]
     Indication: MULTIPLE SCLEROSIS
     Route: 042
  2. COPAXONE [Concomitant]
  3. ATIVAN [Concomitant]
  4. CYMBALTA [Concomitant]
  5. PROTONIX [Concomitant]
  6. AMBIEN [Concomitant]
  7. GABAPENTIN [Concomitant]
  8. TIZANIDINE [Concomitant]

REACTIONS (1)
  - Multiple sclerosis relapse [Recovered/Resolved]
